FAERS Safety Report 14253377 (Version 2)
Quarter: 2018Q1

REPORT INFORMATION
  Report Type: Report from Study
  Country: AU (occurrence: AU)
  Receive Date: 20171205
  Receipt Date: 20180329
  Transmission Date: 20180508
  Serious: Yes (Hospitalization, Other)
  Sender: FDA-Public Use
  Company Number: AU-AMGEN-AUSCT2017179440

PATIENT
  Age: 69 Year
  Sex: Male

DRUGS (6)
  1. LIGNOCAINE [Concomitant]
     Active Substance: LIDOCAINE HYDROCHLORIDE
     Indication: PAIN
     Dosage: UNK
  2. THALIDOMIDE [Suspect]
     Active Substance: THALIDOMIDE
     Indication: PLASMA CELL MYELOMA
     Dosage: UNK UNK, PER CHEMO REGIM
     Route: 065
     Dates: start: 20171002, end: 20171127
  3. DEXAMETHASONE. [Suspect]
     Active Substance: DEXAMETHASONE
     Indication: PLASMA CELL MYELOMA
     Dosage: UNK UNK, PER CHEMO REGIM
     Route: 065
     Dates: start: 20171002, end: 20171128
  4. DEXMEDETOMIDINE. [Concomitant]
     Active Substance: DEXMEDETOMIDINE
     Indication: DELIRIUM
     Dosage: UNK
  5. CARFILZOMIB [Suspect]
     Active Substance: CARFILZOMIB
     Indication: PLASMA CELL MYELOMA
     Dosage: UNK UNK, PER CHEMO REGIM
     Route: 065
     Dates: start: 20171002, end: 20171128
  6. QUETIAPINE. [Concomitant]
     Active Substance: QUETIAPINE
     Indication: DELIRIUM
     Dosage: UNK

REACTIONS (1)
  - Pulmonary sepsis [Recovered/Resolved with Sequelae]

NARRATIVE: CASE EVENT DATE: 20171128
